FAERS Safety Report 18845418 (Version 3)
Quarter: 2021Q2

REPORT INFORMATION
  Report Type: Report from Study
  Country: US (occurrence: US)
  Receive Date: 20210204
  Receipt Date: 20210404
  Transmission Date: 20210717
  Serious: Yes (Hospitalization, Other)
  Sender: FDA-Public Use
  Company Number: US-BRISTOL-MYERS SQUIBB COMPANY-BMS-2021-008781

PATIENT
  Age: 81 Year
  Sex: Female
  Weight: 88 kg

DRUGS (10)
  1. NIVOLUMAB [Suspect]
     Active Substance: NIVOLUMAB
     Indication: BLADDER CANCER
     Dosage: 360 MG, EVERY 21 DAYS
     Route: 042
     Dates: start: 20201019
  2. CISPLATIN. [Suspect]
     Active Substance: CISPLATIN
     Indication: BLADDER CANCER
     Dosage: 150 MG, EVERY 21 DAYS
     Route: 042
     Dates: start: 20201019
  3. GEMCITABINE HYDROCHLORIDE. [Suspect]
     Active Substance: GEMCITABINE HYDROCHLORIDE
     Indication: BLADDER CANCER
     Dosage: 1600 MG D1/D8
     Route: 042
     Dates: start: 20201019
  4. HEPARIN [Concomitant]
     Active Substance: HEPARIN SODIUM
     Indication: PRODUCT USED FOR UNKNOWN INDICATION
     Dosage: 1300 UNITS/HR
     Route: 042
     Dates: start: 20210120, end: 20210120
  5. FUROSEMIDE. [Concomitant]
     Active Substance: FUROSEMIDE
     Indication: PRODUCT USED FOR UNKNOWN INDICATION
     Dosage: 40 MILLIGRAM
     Route: 042
     Dates: start: 20210120, end: 20210123
  6. METOPROLOL TARTRATE. [Concomitant]
     Active Substance: METOPROLOL TARTRATE
     Indication: PRODUCT USED FOR UNKNOWN INDICATION
     Dosage: 12.5 MILLIGRAM (Q6)
     Route: 065
     Dates: start: 20210122, end: 20210122
  7. METOPROLOL. [Concomitant]
     Active Substance: METOPROLOL
     Indication: PRODUCT USED FOR UNKNOWN INDICATION
     Dosage: 5 MG/ONCE
     Route: 042
     Dates: start: 20210120, end: 20210120
  8. CARVEDILOL. [Concomitant]
     Active Substance: CARVEDILOL
     Indication: PRODUCT USED FOR UNKNOWN INDICATION
     Dosage: 6.25 MG/ONCE
     Route: 065
     Dates: start: 20210121, end: 20210121
  9. METOPROLOL. [Concomitant]
     Active Substance: METOPROLOL
     Dosage: 37.5 MILLIGRAM, TID
     Route: 065
     Dates: start: 20210123, end: 20210124
  10. APIXABAN [Concomitant]
     Active Substance: APIXABAN
     Indication: PRODUCT USED FOR UNKNOWN INDICATION
     Route: 065

REACTIONS (1)
  - Atrial fibrillation [Recovered/Resolved]

NARRATIVE: CASE EVENT DATE: 20210120
